FAERS Safety Report 6289313-9 (Version None)
Quarter: 2009Q3

REPORT INFORMATION
  Report Type: 
  Country: None (occurrence: None)
  Receive Date: 20090730
  Receipt Date: 20090724
  Transmission Date: 20100115
  Serious: Yes (Hospitalization)
  Sender: FDA-Public Use
  Company Number: US-BIOGENIDEC-2008BI032834

PATIENT
  Age: 36 Year
  Sex: Female

DRUGS (3)
  1. AVONEX [Suspect]
     Indication: MULTIPLE SCLEROSIS
     Dosage: CALCULATED FROM LMP
     Route: 030
     Dates: start: 20070101, end: 20081020
  2. CLONAZEPAM [Concomitant]
     Indication: ANXIETY
     Route: 048
     Dates: start: 20030101
  3. VITAMIN TAB [Concomitant]
     Indication: SUPPLEMENTATION THERAPY
     Route: 048
     Dates: start: 20081117

REACTIONS (3)
  - CERVIX CERCLAGE PROCEDURE [None]
  - PREGNANCY [None]
  - PREMATURE LABOUR [None]
